FAERS Safety Report 25936865 (Version 2)
Quarter: 2025Q4

REPORT INFORMATION
  Report Type: Report from Study
  Country: US (occurrence: US)
  Receive Date: 20251017
  Receipt Date: 20251027
  Transmission Date: 20260117
  Serious: No
  Sender: MALLINCKRODT
  Company Number: US-MALLINCKRODT-MNK202502250

PATIENT
  Age: 69 Year
  Sex: Male

DRUGS (1)
  1. CORTICOTROPIN [Suspect]
     Active Substance: CORTICOTROPIN
     Indication: Keratitis
     Route: 058
     Dates: start: 202501, end: 2025

REACTIONS (3)
  - Eye colour change [Not Recovered/Not Resolved]
  - Injection site bruising [Unknown]
  - Abdominal distension [Unknown]

NARRATIVE: CASE EVENT DATE: 20250101
